FAERS Safety Report 8519414-3 (Version None)
Quarter: 2012Q3

REPORT INFORMATION
  Report Type: 
  Country: None (occurrence: None)
  Receive Date: 20120718
  Receipt Date: 20120716
  Transmission Date: 20120928
  Serious: No
  Sender: FDA-Public Use
  Company Number: US-TEVA-347419USA

PATIENT
  Sex: Female
  Weight: 49.94 kg

DRUGS (3)
  1. AMOXICILLIN [Concomitant]
     Indication: STREPTOCOCCAL INFECTION
     Dates: start: 20120627, end: 20120706
  2. NORGESTIMATE AND ETHINYL ESTRADIOL [Concomitant]
     Indication: CONTRACEPTION
     Route: 048
  3. PLAN B ONE-STEP [Suspect]
     Indication: POST COITAL CONTRACEPTION
     Dosage: 1.5 MILLIGRAM;
     Route: 048
     Dates: start: 20120706, end: 20120706

REACTIONS (1)
  - ADNEXA UTERI PAIN [None]
